FAERS Safety Report 6608020-3 (Version None)
Quarter: 2010Q1

REPORT INFORMATION
  Report Type: 
  Country: None (occurrence: None)
  Receive Date: 20100301
  Receipt Date: 20100222
  Transmission Date: 20100710
  Serious: Yes (Death)
  Sender: FDA-Public Use
  Company Number: CHPA2010US03733

PATIENT
  Age: 18 Year
  Sex: Male

DRUGS (4)
  1. DEXTROMETHORPHAN HYDROBROMIDE (NCH) [Suspect]
     Dosage: UNK, UNK
     Route: 048
  2. CHLORPHENIRAMINE MALEATE [Suspect]
     Dosage: UNK, UNK
  3. ALPRAZOLAM [Suspect]
     Dosage: UNK, UNK
  4. OXYCODONE [Suspect]
     Dosage: UNK, UNK

REACTIONS (2)
  - CARDIO-RESPIRATORY ARREST [None]
  - DEATH [None]
